FAERS Safety Report 12685735 (Version 1)
Quarter: 2016Q3

REPORT INFORMATION
  Report Type: Spontaneous
  Country: US (occurrence: US)
  Receive Date: 20160825
  Receipt Date: 20160825
  Transmission Date: 20161109
  Serious: Yes (Hospitalization, Other)
  Sender: FDA-Public Use
  Company Number: US-BAXALTA-2016BLT006021

PATIENT
  Age: 58 Year
  Sex: Female
  Weight: 72.5 kg

DRUGS (3)
  1. VALTREX [Interacting]
     Active Substance: VALACYCLOVIR HYDROCHLORIDE
     Indication: INFECTIOUS MONONUCLEOSIS
     Route: 065
  2. GAMMAGARD LIQUID [Suspect]
     Active Substance: HUMAN IMMUNOGLOBULIN G
     Dosage: UNK
     Route: 042
     Dates: start: 20160713
  3. GAMMAGARD LIQUID [Suspect]
     Active Substance: HUMAN IMMUNOGLOBULIN G
     Indication: IMMUNODEFICIENCY COMMON VARIABLE
     Dosage: 30 G, EVERY 4 WK
     Route: 042
     Dates: start: 201603, end: 20160727

REACTIONS (8)
  - Intestinal obstruction [Unknown]
  - Dehydration [Unknown]
  - Pneumonia [Unknown]
  - Back pain [Unknown]
  - Urinary retention [Unknown]
  - Drug interaction [Unknown]
  - Vomiting [Unknown]
  - Migraine [Unknown]

NARRATIVE: CASE EVENT DATE: 20160701
